FAERS Safety Report 4358211-X (Version None)
Quarter: 2004Q2

REPORT INFORMATION
  Report Type: 
  Country: None (occurrence: None)
  Receive Date: 20040511
  Receipt Date: 20040504
  Transmission Date: 20050107
  Serious: Yes (Life-Threatening, Hospitalization)
  Sender: FDA-Public Use
  Company Number: 2004GB01078

PATIENT
  Age: 75 Year
  Sex: Female
  Weight: 58 kg

DRUGS (11)
  1. CRESTOR [Suspect]
     Indication: HYPERCHOLESTEROLAEMIA
     Dosage: 10 MG PO
     Route: 048
     Dates: start: 20030722, end: 20030807
  2. RANITIDINE [Concomitant]
  3. LOSARTAN POTASSIUM [Concomitant]
  4. BENDROFLUAZIDE [Concomitant]
  5. ASPIRIN [Concomitant]
  6. FYBOGEL [Concomitant]
  7. GAVISCON [Concomitant]
  8. LIQUIFILM TEARS [Concomitant]
  9. ACETAMINOPHEN [Concomitant]
  10. SENNA [Concomitant]
  11. OMEPRAZOLE [Concomitant]

REACTIONS (4)
  - COMA [None]
  - HYPOKALAEMIA [None]
  - HYPONATRAEMIA [None]
  - PULMONARY OEDEMA [None]
